FAERS Safety Report 24958595 (Version 1)
Quarter: 2025Q1

REPORT INFORMATION
  Report Type: Other
  Country: CN (occurrence: CN)
  Receive Date: 20250212
  Receipt Date: 20250212
  Transmission Date: 20250409
  Serious: Yes (Hospitalization, Other)
  Sender: ESJAY PHARMA
  Company Number: CN-ESJAY PHARMA-000087

PATIENT
  Age: 36 Year
  Sex: Female

DRUGS (11)
  1. DONEPEZIL [Suspect]
     Active Substance: DONEPEZIL
  2. LEVODOPA [Concomitant]
     Active Substance: LEVODOPA
     Indication: Neuronal ceroid lipofuscinosis
  3. VALPROATE SODIUM [Concomitant]
     Active Substance: VALPROATE SODIUM
     Indication: Neuronal ceroid lipofuscinosis
  4. LAMOTRIGINE [Concomitant]
     Active Substance: LAMOTRIGINE
     Indication: Neuronal ceroid lipofuscinosis
  5. TRIHEXYPHENIDYL [Concomitant]
     Active Substance: TRIHEXYPHENIDYL
     Indication: Neuronal ceroid lipofuscinosis
     Route: 048
  6. immune-globulin [Concomitant]
     Indication: Neuronal ceroid lipofuscinosis
  7. METHYLPREDNISOLONE [Concomitant]
     Active Substance: METHYLPREDNISOLONE
     Indication: Neuronal ceroid lipofuscinosis
  8. PREDNISONE [Concomitant]
     Active Substance: PREDNISONE
  9. MYCOPHENOLATE MOFETIL [Concomitant]
     Active Substance: MYCOPHENOLATE MOFETIL
     Indication: Neuronal ceroid lipofuscinosis
  10. CLONAZEPAM [Concomitant]
     Active Substance: CLONAZEPAM
     Indication: Neuronal ceroid lipofuscinosis
  11. IDEBENONE [Concomitant]
     Active Substance: IDEBENONE
     Indication: Neuronal ceroid lipofuscinosis

REACTIONS (3)
  - Autoimmune thyroiditis [Unknown]
  - Hypothyroidism [Unknown]
  - Drug ineffective for unapproved indication [Unknown]
